FAERS Safety Report 11704787 (Version 1)
Quarter: 2015Q4

REPORT INFORMATION
  Report Type: Spontaneous
  Country: PT (occurrence: PT)
  Receive Date: 20151106
  Receipt Date: 20151106
  Transmission Date: 20160304
  Serious: Yes (Other)
  Sender: FDA-Public Use
  Company Number: PT-ASTRAZENECA-2015SF05998

PATIENT
  Age: 78 Year
  Sex: Female

DRUGS (5)
  1. ALLOPURINOL. [Suspect]
     Active Substance: ALLOPURINOL
     Route: 065
  2. OMEPRAZOLE. [Suspect]
     Active Substance: OMEPRAZOLE
     Route: 048
  3. CIPROFLOXACIN. [Suspect]
     Active Substance: CIPROFLOXACIN
     Indication: CELLULITIS
     Route: 065
  4. FUROSEMIDE. [Suspect]
     Active Substance: FUROSEMIDE
     Route: 065
  5. CARBAMAZEPIN [Suspect]
     Active Substance: CARBAMAZEPINE
     Route: 065

REACTIONS (1)
  - Drug reaction with eosinophilia and systemic symptoms [Unknown]
